FAERS Safety Report 8530913-0 (Version None)
Quarter: 2012Q3

REPORT INFORMATION
  Report Type: 
  Country: None (occurrence: None)
  Receive Date: 20120710
  Receipt Date: 20100714
  Transmission Date: 20120928
  Serious: Yes (Hospitalization, Other)
  Sender: FDA-Public Use
  Company Number: 2010AP001363

PATIENT
  Age: 74 Year
  Sex: Female

DRUGS (8)
  1. RISPERIDONE [Suspect]
     Indication: OFF LABEL USE
     Dosage: 0.0156;1 MG, QD
  2. DONEPEZIL HCL [Concomitant]
  3. QUETIAPINE [Concomitant]
  4. ATENOLOL [Concomitant]
  5. ACETYLSALICYLIC ACID SRT [Concomitant]
  6. MEMANTINE HCL [Concomitant]
  7. LEVOTHYROXINE SODIUM [Concomitant]
  8. CITALOPRAM HYDROBROMIDE [Suspect]
     Indication: DEPRESSION
     Dosage: 40 MG, QD, PO
     Route: 048

REACTIONS (15)
  - TOXICITY TO VARIOUS AGENTS [None]
  - RENAL FAILURE ACUTE [None]
  - LIVER FUNCTION TEST ABNORMAL [None]
  - TREMOR [None]
  - CONFUSIONAL STATE [None]
  - DIARRHOEA [None]
  - ALANINE AMINOTRANSFERASE INCREASED [None]
  - BLOOD CREATINE PHOSPHOKINASE INCREASED [None]
  - DYSKINESIA [None]
  - ASPARTATE AMINOTRANSFERASE INCREASED [None]
  - OFF LABEL USE [None]
  - AGGRESSION [None]
  - URINARY TRACT INFECTION [None]
  - SEROTONIN SYNDROME [None]
  - GAIT DISTURBANCE [None]
